FAERS Safety Report 4606577-5 (Version None)
Quarter: 2005Q2

REPORT INFORMATION
  Report Type: 
  Country: None (occurrence: None)
  Receive Date: 20050223
  Receipt Date: 20040714
  Transmission Date: 20051028
  Serious: Yes (Life-Threatening, Hospitalization, Other)
  Sender: FDA-Public Use
  Company Number: WAES 0407USA01223

PATIENT
  Age: 77 Year
  Sex: Male
  Weight: 57.6068 kg

DRUGS (4)
  1. ZOCOR [Suspect]
     Indication: HYPERCHOLESTEROLAEMIA
     Dosage: 20 MG/DAILY/PO; 80 MG/DAILY/PO; 40 MG/DAILY/PO
     Route: 048
     Dates: start: 20031201, end: 20040624
  2. ZOCOR [Suspect]
     Indication: HYPERCHOLESTEROLAEMIA
     Dosage: 20 MG/DAILY/PO; 80 MG/DAILY/PO; 40 MG/DAILY/PO
     Route: 048
     Dates: start: 19950101
  3. CARDIZEM SR [Concomitant]
  4. ASPIRIN [Concomitant]

REACTIONS (1)
  - RHABDOMYOLYSIS [None]
